FAERS Safety Report 10783876 (Version 1)
Quarter: 2015Q1

REPORT INFORMATION
  Report Type: Other
  Country: US (occurrence: US)
  Receive Date: 20150210
  Receipt Date: 20150210
  Transmission Date: 20150721
  Serious: Yes (Death)
  Sender: FDA-Public Use
  Company Number: US-FRI-1000074423

PATIENT
  Age: 33 Year
  Sex: Female

DRUGS (6)
  1. COCAINE [Suspect]
     Active Substance: COCAINE
  2. ALPRAZOLAM. [Suspect]
     Active Substance: ALPRAZOLAM
  3. CITALOPRAM [Suspect]
     Active Substance: CITALOPRAM HYDROBROMIDE
  4. HEROIN [Suspect]
     Active Substance: DIACETYLMORPHINE
  5. OXYMORPHONE [Suspect]
     Active Substance: OXYMORPHONE
  6. CODEINE [Suspect]
     Active Substance: CODEINE

REACTIONS (3)
  - Drug abuse [Fatal]
  - Cardiac arrest [None]
  - Respiratory arrest [None]
